FAERS Safety Report 8236016 (Version 9)
Quarter: 2013Q1

REPORT INFORMATION
  Report Type: Spontaneous
  Country: US (occurrence: US)
  Receive Date: 20111108
  Receipt Date: 20130307
  Transmission Date: 20140127
  Serious: Yes (Hospitalization, Disabling, Other)
  Sender: FDA-Public Use
  Company Number: US-009507513-1111USA00631

PATIENT
  Sex: Female
  Weight: 65.32 kg

DRUGS (4)
  1. FOSAMAX [Suspect]
     Indication: OSTEOPOROSIS
     Dosage: 70 MG, UNK
     Route: 048
     Dates: start: 200208, end: 200808
  2. FOSAMAX [Suspect]
     Indication: OSTEOPENIA
  3. ALLEGRA [Concomitant]
  4. XYZAL [Concomitant]
     Indication: RHINITIS

REACTIONS (44)
  - Femur fracture [Not Recovered/Not Resolved]
  - Low turnover osteopathy [Not Recovered/Not Resolved]
  - Fracture nonunion [Unknown]
  - Fall [Unknown]
  - Contusion [Unknown]
  - Anxiety [Unknown]
  - Hyperlipidaemia [Unknown]
  - Nodule [Unknown]
  - Nodal osteoarthritis [Unknown]
  - Synovial cyst [Unknown]
  - Fall [Unknown]
  - Normochromic normocytic anaemia [Unknown]
  - Hypertension [Unknown]
  - Nephrolithiasis [Unknown]
  - Hypomagnesaemia [Unknown]
  - Insomnia [Unknown]
  - Leukocytosis [Recovered/Resolved]
  - Osteoarthritis [Unknown]
  - Breast adenoma [Unknown]
  - Paraesthesia [Unknown]
  - Activities of daily living impaired [Unknown]
  - Gait disturbance [Unknown]
  - Hiatus hernia [Unknown]
  - Folliculitis [Unknown]
  - Abdominal hernia [Unknown]
  - Hypertrophic anal papilla [Unknown]
  - Diverticulum [Unknown]
  - Polyp [Unknown]
  - Limb asymmetry [Unknown]
  - Conjunctivitis allergic [Unknown]
  - Contusion [Unknown]
  - Carpal tunnel syndrome [Unknown]
  - Constipation [Unknown]
  - Arthralgia [Unknown]
  - Rash [Unknown]
  - Hypophosphataemia [Unknown]
  - Musculoskeletal pain [Recovering/Resolving]
  - Urticaria [Not Recovered/Not Resolved]
  - Pruritus [Unknown]
  - Alopecia [Unknown]
  - Oedema peripheral [Unknown]
  - Pain in extremity [Unknown]
  - Pruritus [Unknown]
  - Pruritus [Unknown]
